FAERS Safety Report 25108080 (Version 1)
Quarter: 2025Q1

REPORT INFORMATION
  Report Type: Spontaneous
  Country: US (occurrence: US)
  Receive Date: 20250322
  Receipt Date: 20250322
  Transmission Date: 20250409
  Serious: No
  Sender: SANOFI AVENTIS
  Company Number: US-SA-2025SA081578

PATIENT
  Sex: Female

DRUGS (1)
  1. ENJAYMO [Suspect]
     Active Substance: SUTIMLIMAB-JOME

REACTIONS (2)
  - Aphonia [Unknown]
  - COVID-19 [Unknown]
